FAERS Safety Report 10990316 (Version 1)
Quarter: 2015Q1

REPORT INFORMATION
  Report Type: Spontaneous
  Country: US (occurrence: None)
  Receive Date: 20150226
  Receipt Date: 20150226
  Transmission Date: 20150721
  Serious: Yes (Other)
  Sender: FDA-Public Use
  Company Number: TPA2008A01102

PATIENT
  Age: 68 Year
  Sex: Male
  Weight: 73.94 kg

DRUGS (2)
  1. VYTORIN (SIMVASTATIN, EZETIMIBE) [Concomitant]
  2. ACTOS [Suspect]
     Active Substance: PIOGLITAZONE HYDROCHLORIDE
     Indication: TYPE 2 DIABETES MELLITUS
     Dosage: 30 MG, 1 IN 1 D, PER ORAL
     Route: 048
     Dates: start: 20080427, end: 20080508

REACTIONS (8)
  - Alanine aminotransferase increased [None]
  - Blood glucose increased [None]
  - Aspartate aminotransferase increased [None]
  - Blood alkaline phosphatase increased [None]
  - Hepatic enzyme increased [None]
  - Blood bilirubin increased [None]
  - Jaundice [None]
  - Bilirubin conjugated increased [None]

NARRATIVE: CASE EVENT DATE: 20080508
